FAERS Safety Report 11564266 (Version 2)
Quarter: 2015Q4

REPORT INFORMATION
  Report Type: Spontaneous
  Country: US (occurrence: US)
  Receive Date: 20150928
  Receipt Date: 20151117
  Transmission Date: 20160304
  Serious: No
  Sender: FDA-Public Use
  Company Number: US-GLAXOSMITHKLINE-US2015GSK115477

PATIENT
  Sex: Male
  Weight: 68.27 kg

DRUGS (2)
  1. SORIATANE [Suspect]
     Active Substance: ACITRETIN
     Indication: PSORIASIS
     Dosage: 25 MG, U
     Dates: start: 2010
  2. SORIATANE [Suspect]
     Active Substance: ACITRETIN
     Dosage: 10 MG, U

REACTIONS (2)
  - Psoriasis [Unknown]
  - Drug ineffective [Unknown]
